FAERS Safety Report 7992508-7 (Version None)
Quarter: 2011Q4

REPORT INFORMATION
  Report Type: 
  Country: None (occurrence: None)
  Receive Date: 20111219
  Receipt Date: 20111208
  Transmission Date: 20120403
  Serious: Yes (Other)
  Sender: FDA-Public Use
  Company Number: US-PFIZER INC-2011300523

PATIENT
  Sex: Female

DRUGS (1)
  1. CHAPSTICK ULTRA SPF 15 [Suspect]
     Dosage: UNK
     Route: 061

REACTIONS (2)
  - DEPENDENCE [None]
  - OROPHARYNGEAL BLISTERING [None]
